FAERS Safety Report 10074379 (Version 1)
Quarter: 2014Q2

REPORT INFORMATION
  Report Type: Spontaneous
  Country: US (occurrence: US)
  Receive Date: 20140411
  Receipt Date: 20140411
  Transmission Date: 20141212
  Serious: Yes (Other)
  Sender: FDA-Public Use
  Company Number: US-BAXTER-2014BAX017794

PATIENT
  Age: 23 Year
  Sex: Female

DRUGS (3)
  1. CEFTRIAXONE INJECTION, USP (IN DEXTROSE) [Suspect]
     Indication: TYPHOID FEVER
     Route: 042
  2. ZOSYN [Suspect]
     Indication: SEPSIS
     Route: 065
  3. AZITHROMYCIN [Suspect]
     Indication: SEPSIS
     Route: 065

REACTIONS (4)
  - Vaginal haemorrhage [Recovered/Resolved]
  - Abdominal pain lower [Recovered/Resolved]
  - Exposure during pregnancy [Recovered/Resolved]
  - Foetal death [Recovered/Resolved]
